FAERS Safety Report 17782820 (Version 5)
Quarter: 2021Q3

REPORT INFORMATION
  Report Type: Report from Study
  Country: JP (occurrence: JP)
  Receive Date: 20200514
  Receipt Date: 20210712
  Transmission Date: 20211014
  Serious: Yes (Hospitalization)
  Sender: FDA-Public Use
  Company Number: JP-ROCHE-2590080

PATIENT
  Age: 73 Year
  Sex: Female
  Weight: 48 kg

DRUGS (17)
  1. ATEZOLIZUMAB. [Suspect]
     Active Substance: ATEZOLIZUMAB
     Indication: NON-SMALL CELL LUNG CANCER
     Route: 041
     Dates: start: 20191226, end: 20200117
  2. BEVACIZUMAB. [Suspect]
     Active Substance: BEVACIZUMAB
     Indication: NON-SMALL CELL LUNG CANCER
     Route: 041
     Dates: start: 20191226, end: 20200117
  3. PEMETREXED SODIUM HYDRATE [Suspect]
     Active Substance: PEMETREXED
     Route: 041
     Dates: start: 20200201, end: 20200306
  4. PEMETREXED SODIUM HYDRATE [Suspect]
     Active Substance: PEMETREXED
     Indication: LUNG CARCINOMA CELL TYPE UNSPECIFIED STAGE IV
     Route: 041
     Dates: start: 20191226, end: 20200117
  5. CARBOPLATIN. [Suspect]
     Active Substance: CARBOPLATIN
     Indication: LUNG CARCINOMA CELL TYPE UNSPECIFIED STAGE IV
     Dosage: AUC5
     Route: 041
     Dates: start: 20191226, end: 20200117
  6. BETAMETHASONE BUTYRATE PROPIONATE [Concomitant]
     Active Substance: BETAMETHASONE BUTYRATE PROPIONATE
     Indication: DERMATITIS EXFOLIATIVE GENERALISED
     Dosage: PROPER SPREADING
     Route: 061
     Dates: start: 20200115
  7. SULFAMETHOXAZOLE [Concomitant]
     Active Substance: SULFAMETHOXAZOLE
     Indication: INFECTION PROPHYLAXIS
     Dosage: DOSE INTERVAL UNCERTAINTY
     Route: 048
     Dates: start: 20200403
  8. BEVACIZUMAB. [Suspect]
     Active Substance: BEVACIZUMAB
     Route: 041
     Dates: start: 20200214, end: 20200306
  9. CALONAL [Suspect]
     Active Substance: ACETAMINOPHEN
     Indication: PRODUCT USED FOR UNKNOWN INDICATION
     Dosage: DOSAGE IS UNCERTAIN
     Route: 065
  10. CARBOPLATIN. [Suspect]
     Active Substance: CARBOPLATIN
     Dosage: AUC5
     Route: 041
     Dates: start: 20200214, end: 20200306
  11. FRESMIN S [Concomitant]
     Active Substance: HYDROXOCOBALAMIN
     Indication: PREMEDICATION
     Dosage: 500MG/M2,ONCE IN3WEEK
     Route: 030
     Dates: start: 20191219, end: 20200306
  12. CARBOPLATIN. [Concomitant]
     Active Substance: CARBOPLATIN
     Indication: LUNG CARCINOMA CELL TYPE UNSPECIFIED STAGE IV
     Dosage: AUC5
     Route: 041
     Dates: start: 20191226
  13. HEPARINOID [Concomitant]
     Active Substance: CHONDROITIN SULFATE (BOVINE)
     Indication: DERMATITIS EXFOLIATIVE GENERALISED
     Dosage: PROPER SPREADING
     Route: 061
     Dates: start: 20200115
  14. CROTAMITON [Concomitant]
     Active Substance: CROTAMITON
     Indication: DERMATITIS EXFOLIATIVE GENERALISED
     Dosage: PROPER SPREADING
     Route: 061
     Dates: start: 20200115
  15. FRESMIN S [HYDROXOCOBALAMIN ACETATE] [Concomitant]
     Indication: PREMEDICATION
     Dosage: 1ML,ONCE IN9WEEK
     Route: 030
     Dates: start: 20191219
  16. ATEZOLIZUMAB. [Suspect]
     Active Substance: ATEZOLIZUMAB
     Route: 041
     Dates: start: 20200201, end: 20200306
  17. NEXIUM [Concomitant]
     Active Substance: ESOMEPRAZOLE MAGNESIUM
     Indication: GASTRITIS PROPHYLAXIS
     Dosage: 20MG,ONCE IN1DAY
     Route: 048
     Dates: start: 20200410

REACTIONS (5)
  - Lower gastrointestinal haemorrhage [Recovering/Resolving]
  - Colitis [Not Recovered/Not Resolved]
  - Cholangitis [Not Recovered/Not Resolved]
  - Meningoencephalitis herpetic [Not Recovered/Not Resolved]
  - Disseminated intravascular coagulation [Recovered/Resolved]

NARRATIVE: CASE EVENT DATE: 20200416
